FAERS Safety Report 4299574-3 (Version None)
Quarter: 2004Q1

REPORT INFORMATION
  Report Type: 
  Country: None (occurrence: None)
  Receive Date: 20040217
  Receipt Date: 20040203
  Transmission Date: 20041129
  Serious: Yes (Hospitalization)
  Sender: FDA-Public Use
  Company Number: 04P-087-0249547-00

PATIENT
  Age: 81 Year
  Sex: Male
  Weight: 58.2 kg

DRUGS (10)
  1. BIAXIN [Suspect]
     Indication: HELICOBACTER INFECTION
     Dosage: 400 MG, 2 IN 1 D, PER ORAL
     Route: 048
     Dates: start: 20030701, end: 20030703
  2. GLICLAZIDE (GLICLAZIDE) [Suspect]
     Indication: DIABETES MELLITUS
     Dosage: 40 MG, 2 IN 1 D, PER ORAL
     Route: 048
     Dates: end: 20030703
  3. TEMOCAPRIL HYDROCHLORIDE [Suspect]
     Indication: HYPERTENSION
     Dosage: 2 MG, 2 IN 1 D, PER ORAL
     Route: 048
  4. BEVANTOLOL HYDROCHLORIDE [Suspect]
     Indication: HYPERTENSION
     Dosage: 50 MG, 2 IN 1 D, PER ORAL
     Route: 048
  5. ISOSORBIDE DINITRATE [Concomitant]
  6. NITRENDIPINE [Concomitant]
  7. BENZBROMARONE [Concomitant]
  8. PROPIVERINE HYDROCHLORIDE [Concomitant]
  9. LANSOPRAZOLE [Concomitant]
  10. AMOXICILLIN [Concomitant]

REACTIONS (2)
  - DRUG INTERACTION [None]
  - HYPOGLYCAEMIC COMA [None]
